FAERS Safety Report 7642584-6 (Version None)
Quarter: 2011Q3

REPORT INFORMATION
  Report Type: 
  Country: None (occurrence: None)
  Receive Date: 20110728
  Receipt Date: 20110726
  Transmission Date: 20111222
  Serious: Yes (Death, Hospitalization)
  Sender: FDA-Public Use
  Company Number: FR-CEPHALON-2011003486

PATIENT
  Sex: Male
  Weight: 75 kg

DRUGS (2)
  1. BENDAMUSTINE HCL [Suspect]
     Route: 041
     Dates: start: 20110511, end: 20110512
  2. RITUXIMAB [Suspect]
     Route: 042
     Dates: start: 20110511, end: 20110511

REACTIONS (13)
  - BLOOD BICARBONATE DECREASED [None]
  - DISSEMINATED INTRAVASCULAR COAGULATION [None]
  - BLOOD CULTURE POSITIVE [None]
  - ASPARTATE AMINOTRANSFERASE INCREASED [None]
  - ALANINE AMINOTRANSFERASE INCREASED [None]
  - STAPHYLOCOCCAL INFECTION [None]
  - SEPTIC SHOCK [None]
  - BLOOD BILIRUBIN INCREASED [None]
  - CARDIAC FAILURE [None]
  - BLOOD CREATININE INCREASED [None]
  - FEBRILE BONE MARROW APLASIA [None]
  - MULTI-ORGAN FAILURE [None]
  - NEUTROPENIA [None]
